FAERS Safety Report 8990613 (Version 1)
Quarter: 2012Q4

REPORT INFORMATION
  Report Type: 
  Country: US (occurrence: US)
  Receive Date: 20121228
  Receipt Date: 20121228
  Transmission Date: 20130627
  Serious: No
  Sender: FDA-Public Use
  Company Number: US-TEVA-377962USA

PATIENT
  Age: 40 Year
  Sex: Female
  Weight: 65.83 kg

DRUGS (3)
  1. PLAN B ONE-STEP [Suspect]
     Indication: POST COITAL CONTRACEPTION
     Dosage: 1.5 Milligram Daily;
     Route: 048
     Dates: start: 20121204, end: 20121204
  2. ADVAIR [Concomitant]
     Indication: ASTHMA
     Dates: start: 2009
  3. ALBUTEROL [Concomitant]
     Indication: ASTHMA

REACTIONS (2)
  - Vaginal discharge [Not Recovered/Not Resolved]
  - Menstruation irregular [Recovered/Resolved]
